FAERS Safety Report 25121017 (Version 2)
Quarter: 2025Q2

REPORT INFORMATION
  Report Type: Spontaneous
  Country: CA (occurrence: CA)
  Receive Date: 20250326
  Receipt Date: 20250403
  Transmission Date: 20250717
  Serious: Yes (Other)
  Sender: SANOFI AVENTIS
  Company Number: CA-SANOFI-02420992

PATIENT
  Sex: Male

DRUGS (1)
  1. INSULIN ASPART [Suspect]
     Active Substance: INSULIN ASPART
     Indication: Diabetes mellitus
     Route: 065

REACTIONS (4)
  - Deafness [Unknown]
  - Schizoaffective disorder [Unknown]
  - Blood glucose increased [Unknown]
  - Device breakage [Unknown]

NARRATIVE: CASE EVENT DATE: 20250201
